FAERS Safety Report 4802118-8 (Version None)
Quarter: 2005Q4

REPORT INFORMATION
  Report Type: 
  Country: None (occurrence: None)
  Receive Date: 20051012
  Receipt Date: 20050929
  Transmission Date: 20060501
  Serious: Yes (Death)
  Sender: FDA-Public Use
  Company Number: RENA-11561

PATIENT
  Sex: Male

DRUGS (1)
  1. RENAGEL [Suspect]
     Indication: BLOOD PHOSPHORUS INCREASED
     Dosage: 1.2 G TID PO
     Route: 048

REACTIONS (1)
  - CARDIAC FAILURE [None]
